FAERS Safety Report 7740211-0 (Version None)
Quarter: 2011Q3

REPORT INFORMATION
  Report Type: 
  Country: None (occurrence: None)
  Receive Date: 20110909
  Receipt Date: 20110909
  Transmission Date: 20111222
  Serious: Yes (Other)
  Sender: FDA-Public Use
  Company Number: None

PATIENT
  Age: 32 Year
  Sex: Female
  Weight: 58.967 kg

DRUGS (1)
  1. NOSE BETTER [Suspect]
     Indication: NASAL DRYNESS
     Dosage: 2 SPRAYS IN EACH NOSTRIL
     Route: 045
     Dates: start: 20110907, end: 20110907

REACTIONS (3)
  - OEDEMA MOUTH [None]
  - ORAL PAIN [None]
  - NASAL DISCOMFORT [None]
